FAERS Safety Report 7700814-6 (Version None)
Quarter: 2011Q3

REPORT INFORMATION
  Report Type: 
  Country: None (occurrence: None)
  Receive Date: 20110822
  Receipt Date: 20110815
  Transmission Date: 20111222
  Serious: Yes (Hospitalization, Other)
  Sender: FDA-Public Use
  Company Number: US-B.I. PHARMACEUTICALS,INC./RIDGEFIELD-2011-BP-08959BP

PATIENT
  Sex: Female

DRUGS (7)
  1. XANAX [Concomitant]
     Indication: ANXIETY
     Dosage: 0.25 MG
  2. MULTAQ [Concomitant]
     Dosage: 400 MG
  3. PRADAXA [Concomitant]
     Dosage: 300 MG
  4. FLOMAX [Suspect]
     Indication: MICTURITION DISORDER
     Dosage: 0.4 MG
     Route: 048
     Dates: start: 20080101
  5. METOPROLOL [Concomitant]
     Indication: ATRIAL FIBRILLATION
     Dosage: 25 MG
     Route: 048
     Dates: start: 20080101
  6. RAMIPRIL [Concomitant]
     Indication: HYPERTENSION
     Dosage: 10 MG
     Dates: start: 20080101
  7. FLOMAX [Suspect]
     Indication: BLADDER DISORDER

REACTIONS (2)
  - CEREBROVASCULAR ACCIDENT [None]
  - ULCER HAEMORRHAGE [None]
